FAERS Safety Report 15372415 (Version 4)
Quarter: 2018Q4

REPORT INFORMATION
  Report Type: Report from Study
  Country: TW (occurrence: TW)
  Receive Date: 20180911
  Receipt Date: 20181120
  Transmission Date: 20190204
  Serious: Yes (Death, Other)
  Sender: FDA-Public Use
  Company Number: TW-TAKEDA-2018TUS026921

PATIENT
  Age: 49 Year
  Sex: Female

DRUGS (2)
  1. PONATINIB [Suspect]
     Active Substance: PONATINIB
     Dosage: 30 MG, QD
     Route: 048
     Dates: start: 20180531
  2. PONATINIB [Suspect]
     Active Substance: PONATINIB
     Indication: ACUTE LYMPHOCYTIC LEUKAEMIA
     Dosage: 15 MG, QD
     Route: 048
     Dates: start: 20180530, end: 20180530

REACTIONS (5)
  - Pyrexia [Recovered/Resolved]
  - Haemorrhage intracranial [Fatal]
  - Seizure [Recovered/Resolved]
  - Central nervous system leukaemia [Fatal]
  - Sepsis [Unknown]

NARRATIVE: CASE EVENT DATE: 20180808
